FAERS Safety Report 5299492-8 (Version None)
Quarter: 2007Q2

REPORT INFORMATION
  Report Type: 
  Country: None (occurrence: None)
  Receive Date: 20070417
  Receipt Date: 20070405
  Transmission Date: 20071010
  Serious: Yes (Other)
  Sender: FDA-Public Use
  Company Number: JP-SANOFI-SYNTHELABO-A01200703817

PATIENT
  Age: 73 Year
  Sex: Female

DRUGS (2)
  1. BONALON [Concomitant]
     Indication: DRUG USE FOR UNKNOWN INDICATION
     Dosage: UNK
     Route: 048
  2. MYSLEE [Suspect]
     Indication: CIRCADIAN RHYTHM SLEEP DISORDER
     Dosage: 5 MG
     Route: 048
     Dates: start: 20070404, end: 20070404

REACTIONS (2)
  - HYPOTHERMIA [None]
  - LOSS OF CONSCIOUSNESS [None]
